FAERS Safety Report 6383785-7 (Version None)
Quarter: 2009Q4

REPORT INFORMATION
  Report Type: 
  Country: None (occurrence: None)
  Receive Date: 20091001
  Receipt Date: 20090923
  Transmission Date: 20100525
  Serious: Yes (Other)
  Sender: FDA-Public Use
  Company Number: AU-JNJFOC-20090907119

PATIENT
  Sex: Female

DRUGS (3)
  1. RISPERDAL CONSTA [Suspect]
     Indication: DRUG USE FOR UNKNOWN INDICATION
     Route: 065
  2. ABILIFY [Concomitant]
     Route: 065
  3. SEROQUEL [Concomitant]
     Route: 065

REACTIONS (2)
  - NERVE COMPRESSION [None]
  - NEUROPATHY PERIPHERAL [None]
